FAERS Safety Report 4977815-4 (Version None)
Quarter: 2006Q2

REPORT INFORMATION
  Report Type: 
  Country: None (occurrence: None)
  Receive Date: 20060420
  Receipt Date: 20060411
  Transmission Date: 20061013
  Serious: Yes (Hospitalization)
  Sender: FDA-Public Use
  Company Number: PHRM2006FR01342

PATIENT
  Age: 76 Year
  Sex: Male

DRUGS (7)
  1. COMTAN [Suspect]
     Indication: PARKINSON'S DISEASE
     Dosage: 800 MG DAILY
     Route: 048
     Dates: end: 20060406
  2. COMTAN [Suspect]
     Route: 048
     Dates: start: 20060408
  3. MODOPAR [Suspect]
     Indication: PARKINSON'S DISEASE
     Dosage: 150 MG OF LEVODOPA+ 37.5 MG OF BENSERAZIDE
     Route: 048
     Dates: end: 20060406
  4. MODOPAR [Suspect]
     Dates: start: 20060408
  5. SELEGILINE HCL [Suspect]
     Indication: PARKINSON'S DISEASE
     Route: 048
     Dates: end: 20060406
  6. SELEGILINE HCL [Suspect]
     Route: 048
     Dates: start: 20060408
  7. ANAESTHETICS [Suspect]
     Indication: PROSTATIC OPERATION

REACTIONS (5)
  - AGGRESSION [None]
  - AGITATION [None]
  - CONFUSIONAL STATE [None]
  - DRUG INTERACTION [None]
  - PROSTATIC OPERATION [None]
